FAERS Safety Report 13933007 (Version 3)
Quarter: 2018Q3

REPORT INFORMATION
  Report Type: Report from Study
  Country: None (occurrence: DE)
  Receive Date: 20170904
  Receipt Date: 20180731
  Transmission Date: 20181010
  Serious: Yes (Hospitalization, Disabling, Other)
  Sender: FDA-Public Use
  Company Number: DE-ABBVIE-17K-062-2086282-00

PATIENT
  Age: 11 Year
  Sex: Male

DRUGS (7)
  1. HUMIRA [Suspect]
     Active Substance: ADALIMUMAB
     Indication: JUVENILE IDIOPATHIC ARTHRITIS
     Route: 058
     Dates: start: 2015
  2. HUMIRA [Suspect]
     Active Substance: ADALIMUMAB
     Indication: JUVENILE IDIOPATHIC ARTHRITIS
     Route: 058
  3. HUMIRA [Suspect]
     Active Substance: ADALIMUMAB
     Indication: UVEITIS
  4. HUMIRA [Suspect]
     Active Substance: ADALIMUMAB
     Indication: UVEITIS
     Route: 058
  5. HUMIRA [Suspect]
     Active Substance: ADALIMUMAB
     Indication: NEURODERMATITIS
  6. HUMIRA [Suspect]
     Active Substance: ADALIMUMAB
     Indication: NEURODERMATITIS
  7. METHOTREXATE. [Concomitant]
     Active Substance: METHOTREXATE
     Indication: JUVENILE IDIOPATHIC ARTHRITIS
     Dates: end: 2016

REACTIONS (19)
  - Visual impairment [Not Recovered/Not Resolved]
  - Eye injury [Unknown]
  - Myalgia [Recovering/Resolving]
  - Vision blurred [Unknown]
  - Rhinitis [Recovered/Resolved]
  - Infection [Recovered/Resolved]
  - Pain [Unknown]
  - Blood creatine phosphokinase increased [Recovering/Resolving]
  - Photophobia [Unknown]
  - Injection site rash [Unknown]
  - Off label use [Unknown]
  - Lymphadenopathy [Unknown]
  - Hyphaema [Recovered/Resolved]
  - Viral myositis [Recovering/Resolving]
  - Chest pain [Recovered/Resolved]
  - Rhabdomyolysis [Recovered/Resolved]
  - General physical health deterioration [Recovering/Resolving]
  - Rhinitis [Not Recovered/Not Resolved]
  - Seasonal allergy [Not Recovered/Not Resolved]

NARRATIVE: CASE EVENT DATE: 2015
